FAERS Safety Report 8831622 (Version 3)
Quarter: 2012Q4

REPORT INFORMATION
  Report Type: 
  Country: US (occurrence: US)
  Receive Date: 20121009
  Receipt Date: 20121220
  Transmission Date: 20130627
  Serious: Yes (Hospitalization)
  Sender: FDA-Public Use
  Company Number: US-ELI_LILLY_AND_COMPANY-US201201004821

PATIENT
  Sex: Male
  Weight: 127 kg

DRUGS (6)
  1. HUMATROPE [Suspect]
     Indication: GROWTH HORMONE DEFICIENCY
     Dosage: 3.6 mg, qd
  2. HUMATROPE [Suspect]
     Dosage: 0.8 mg, qd
     Dates: start: 201201
  3. HUMATROPE [Suspect]
     Dosage: 0.4 mg, qd
     Dates: start: 201207
  4. PERCOCET [Concomitant]
  5. HYDROCODONE [Concomitant]
  6. TESTOSTERONE [Concomitant]
     Dosage: UNK
     Dates: start: 2009

REACTIONS (8)
  - Coronary artery occlusion [Unknown]
  - Arteriosclerosis [Unknown]
  - Cyst [Unknown]
  - Fatigue [Unknown]
  - Drug dose omission [Unknown]
  - Wrong technique in drug usage process [Unknown]
  - Hidradenitis [Unknown]
  - Wrong technique in drug usage process [Unknown]
